FAERS Safety Report 20690504 (Version 2)
Quarter: 2022Q2

REPORT INFORMATION
  Report Type: Report from Study
  Country: HU (occurrence: HU)
  Receive Date: 20220408
  Receipt Date: 20220429
  Transmission Date: 20220721
  Serious: Yes (Hospitalization)
  Sender: FDA-Public Use
  Company Number: HU-VELOXIS PHARMACEUTICALS-2022VELHU-000227

PATIENT
  Age: 63 Year
  Sex: Male

DRUGS (10)
  1. ENVARSUS XR [Suspect]
     Active Substance: TACROLIMUS
     Indication: Prophylaxis against transplant rejection
     Dosage: UNK
     Route: 048
     Dates: start: 2018
  2. ENVARSUS XR [Suspect]
     Active Substance: TACROLIMUS
     Dosage: 9 MILLIGRAM, QD
     Route: 048
     Dates: start: 20210527
  3. LAPINE T-LYMPHOCYTE IMMUNE GLOBULIN [Suspect]
     Active Substance: LAPINE T-LYMPHOCYTE IMMUNE GLOBULIN
     Indication: Immunosuppressant drug therapy
     Dosage: UNK
  4. MYFORTIC [Suspect]
     Active Substance: MYCOPHENOLATE SODIUM
     Indication: Prophylaxis against transplant rejection
     Dosage: 540 MILLIGRAM, BID
  5. MYFORTIC [Suspect]
     Active Substance: MYCOPHENOLATE SODIUM
     Indication: Immunosuppression
  6. FAMOTIDINE [Concomitant]
     Active Substance: FAMOTIDINE
     Indication: Prophylaxis against gastrointestinal ulcer
     Dosage: 40 MILLIGRAM, QD
  7. RILMENIDINE [Concomitant]
     Active Substance: RILMENIDINE
     Indication: Blood disorder prophylaxis
     Dosage: 1 MILLIGRAM, BID
  8. TAMLOSET [Concomitant]
     Indication: Blood disorder prophylaxis
     Dosage: 40 MILLIGRAM, QD
  9. TAMLOSET [Concomitant]
     Dosage: 5 MILLIGRAM, QD
  10. ASPIRIN [Concomitant]
     Active Substance: ASPIRIN
     Indication: Thrombosis prophylaxis
     Dosage: 100 MILLIGRAM, QD

REACTIONS (1)
  - Weight decreased [Not Recovered/Not Resolved]
